FAERS Safety Report 7120056-5 (Version None)
Quarter: 2010Q4

REPORT INFORMATION
  Report Type: 
  Country: None (occurrence: None)
  Receive Date: 20101123
  Receipt Date: 20101122
  Transmission Date: 20110411
  Serious: Yes (Death, Disabling, Other)
  Sender: FDA-Public Use
  Company Number: US-CEPHALON-2010002883

PATIENT
  Sex: Male

DRUGS (10)
  1. TREANDA [Suspect]
     Indication: CHRONIC LYMPHOCYTIC LEUKAEMIA
     Route: 041
     Dates: start: 20100428, end: 20100601
  2. ALLOPURINOL [Suspect]
     Indication: TUMOUR LYSIS SYNDROME
     Dates: start: 20100421, end: 20100521
  3. RITUXAN [Suspect]
     Indication: CHRONIC LYMPHOCYTIC LEUKAEMIA
     Dates: start: 20100428, end: 20100428
  4. DILTIAZEM [Concomitant]
  5. DEXAMETHASONE [Concomitant]
     Route: 040
  6. CORTEF [Concomitant]
  7. ZETIA [Concomitant]
  8. ATENOLOL [Concomitant]
  9. PROSCAR [Concomitant]
  10. ASPIRIN [Concomitant]

REACTIONS (2)
  - CARDIAC DEATH [None]
  - RASH GENERALISED [None]
